FAERS Safety Report 21816045 (Version 1)
Quarter: 2023Q1

REPORT INFORMATION
  Report Type: Spontaneous
  Country: BR (occurrence: BR)
  Receive Date: 20230104
  Receipt Date: 20230104
  Transmission Date: 20230418
  Serious: Yes (Hospitalization, Other)
  Sender: FDA-Public Use
  Company Number: BR-ORGANON-O2301BRA000006

PATIENT
  Age: 98 Year
  Sex: Female

DRUGS (1)
  1. REMERON SOLTAB [Suspect]
     Active Substance: MIRTAZAPINE
     Indication: Depression
     Dosage: UNK
     Route: 048

REACTIONS (4)
  - Pleural effusion [Unknown]
  - Arrhythmia [Unknown]
  - Nausea [Unknown]
  - Product use complaint [Unknown]
